FAERS Safety Report 10918378 (Version 1)
Quarter: 2015Q1

REPORT INFORMATION
  Report Type: Spontaneous
  Country: US (occurrence: US)
  Receive Date: 20150316
  Receipt Date: 20150316
  Transmission Date: 20150721
  Serious: No
  Sender: FDA-Public Use
  Company Number: US-ASTELLAS-2014US020978

PATIENT
  Age: 77 Year
  Sex: Male

DRUGS (2)
  1. XTANDI [Suspect]
     Active Substance: ENZALUTAMIDE
     Indication: PROSTATE CANCER
     Dosage: UNK UNK, UNKNOWN FREQ.
     Route: 065
  2. FLOMAX [Concomitant]
     Active Substance: TAMSULOSIN HYDROCHLORIDE
     Indication: URINARY RETENTION
     Dosage: UNK UNK, UNKNOWN FREQ.
     Route: 065

REACTIONS (9)
  - Cough [Unknown]
  - Nasal congestion [Unknown]
  - Insomnia [Unknown]
  - Dry mouth [Unknown]
  - Nausea [Unknown]
  - Asthenia [Unknown]
  - Sensation of foreign body [Unknown]
  - Urinary retention [Unknown]
  - Constipation [Unknown]

NARRATIVE: CASE EVENT DATE: 201412
